FAERS Safety Report 7424126-3 (Version None)
Quarter: 2011Q2

REPORT INFORMATION
  Report Type: 
  Country: None (occurrence: None)
  Receive Date: 20110411
  Receipt Date: 20110331
  Transmission Date: 20111010
  Serious: Yes (Other)
  Sender: FDA-Public Use
  Company Number: DKLU1069507

PATIENT
  Age: 2 Year
  Sex: Male

DRUGS (6)
  1. PHENOBARBITAL (PHENOBARBIGTAL) [Concomitant]
  2. MIRALAX [Concomitant]
  3. KEPPRA [Concomitant]
  4. INHALERS (ANTI-ASTHMATICS) [Concomitant]
  5. MULTIVITAMIN (VIGRAN) [Concomitant]
  6. SABRIL [Suspect]
     Indication: INFANTILE SPASMS
     Dosage: 500 MG, MILLIGRAM, 2 IN 1 D, ORAL
     Route: 048

REACTIONS (1)
  - HEMIANOPIA HOMONYMOUS [None]
